FAERS Safety Report 14008611 (Version 1)
Quarter: 2017Q3

REPORT INFORMATION
  Report Type: Spontaneous
  Country: IT (occurrence: IT)
  Receive Date: 20170925
  Receipt Date: 20170925
  Transmission Date: 20171128
  Serious: Yes (Other)
  Sender: FDA-Public Use
  Company Number: IT-ELI_LILLY_AND_COMPANY-IT201709007425

PATIENT
  Age: 79 Year
  Sex: Male
  Weight: 63 kg

DRUGS (3)
  1. FLUOROURACIL. [Suspect]
     Active Substance: FLUOROURACIL
     Indication: NEOPLASM PROGRESSION
     Dosage: 3300 MG, UNKNOWN
     Route: 042
     Dates: start: 20170125
  2. IRINOTECAN HYDROCHLORIDE TRIHYDRATE [Suspect]
     Active Substance: IRINOTECAN HYDROCHLORIDE
     Indication: NEOPLASM PROGRESSION
     Dosage: 230 MG, UNKNOWN
     Route: 042
     Dates: start: 20170125
  3. ERBITUX [Suspect]
     Active Substance: CETUXIMAB
     Indication: NEOPLASM PROGRESSION
     Dosage: 550 MG, UNKNOWN
     Route: 042
     Dates: start: 20170125

REACTIONS (1)
  - Thrombocytopenia [Recovering/Resolving]

NARRATIVE: CASE EVENT DATE: 20170522
